FAERS Safety Report 6284082-0 (Version None)
Quarter: 2009Q3

REPORT INFORMATION
  Report Type: 
  Country: None (occurrence: None)
  Receive Date: 20090727
  Receipt Date: 20090715
  Transmission Date: 20100115
  Serious: Yes (Hospitalization)
  Sender: FDA-Public Use
  Company Number: BR-ELI_LILLY_AND_COMPANY-BR200907003295

PATIENT
  Sex: Male
  Weight: 70 kg

DRUGS (8)
  1. BYETTA [Suspect]
     Indication: TYPE 2 DIABETES MELLITUS
     Dosage: 5 UG, 2/D
     Route: 058
     Dates: start: 20090703
  2. ARADOIS [Concomitant]
     Dosage: UNK, UNKNOWN
     Route: 065
  3. OMEPRAZOLE [Concomitant]
     Dosage: UNK, UNKNOWN
     Route: 065
  4. ASPIRIN [Concomitant]
     Dosage: UNK, UNKNOWN
     Route: 065
  5. LIPITOR [Concomitant]
     Dosage: UNK, UNKNOWN
     Route: 065
  6. RETEMIC [Concomitant]
     Dosage: UNK, UNKNOWN
     Route: 065
  7. LANTUS [Concomitant]
     Dosage: UNK, UNKNOWN
     Route: 065
  8. NOVORAPID [Concomitant]

REACTIONS (6)
  - BURNING SENSATION [None]
  - FEELING ABNORMAL [None]
  - GASTRITIS [None]
  - HYPERGLYCAEMIA [None]
  - OESOPHAGITIS [None]
  - VOMITING [None]
